FAERS Safety Report 4331528-0 (Version None)
Quarter: 2004Q1

REPORT INFORMATION
  Report Type: 
  Country: None (occurrence: None)
  Receive Date: 20040329
  Receipt Date: 20040318
  Transmission Date: 20041129
  Serious: Yes (Hospitalization, Disabling)
  Sender: FDA-Public Use
  Company Number: 2004UW05184

PATIENT
  Age: 47 Year
  Sex: Male

DRUGS (11)
  1. NEXIUM [Suspect]
     Indication: PROPHYLAXIS AGAINST GASTROINTESTINAL ULCER
     Dosage: 20 MG QD PO
     Dates: start: 20040107, end: 20040127
  2. MAXIPIME [Suspect]
     Indication: PYREXIA
     Dosage: 4 GR QD
     Dates: start: 20040122, end: 20040126
  3. IBUPROFEN [Suspect]
     Indication: PAIN
     Dosage: 400 MG 3/1 DAY PO
     Dates: start: 20040107, end: 20040126
  4. EFFEXOR [Concomitant]
  5. SERESTA [Concomitant]
  6. DAFALGAN [Concomitant]
  7. TRAMADOL HCL [Concomitant]
  8. ADALAT [Concomitant]
  9. SIRDALUD [Concomitant]
  10. THIAMINE HCL [Concomitant]
  11. BECOZYM [Concomitant]

REACTIONS (7)
  - AGRANULOCYTOSIS [None]
  - DYSURIA [None]
  - PLATELET COUNT DECREASED [None]
  - PYREXIA [None]
  - SHIFT TO THE LEFT [None]
  - STRANGURY [None]
  - WHITE BLOOD CELL COUNT INCREASED [None]
